FAERS Safety Report 7310212-5 (Version None)
Quarter: 2011Q1

REPORT INFORMATION
  Report Type: 
  Country: None (occurrence: None)
  Receive Date: 20110224
  Receipt Date: 20110216
  Transmission Date: 20110831
  Serious: No
  Sender: FDA-Public Use
  Company Number: US-PFIZER INC-2011035630

PATIENT
  Sex: Female
  Weight: 68 kg

DRUGS (1)
  1. XALATAN [Suspect]
     Indication: CATARACT
     Dosage: 1 GTT IN EACH EYE, 1X/DAY
     Dates: start: 20101201

REACTIONS (2)
  - EYE DISORDER [None]
  - PRURITUS [None]
